FAERS Safety Report 6066246-4 (Version None)
Quarter: 2009Q1

REPORT INFORMATION
  Report Type: 
  Country: None (occurrence: None)
  Receive Date: 20090205
  Receipt Date: 20090127
  Transmission Date: 20090719
  Serious: Yes (Hospitalization)
  Sender: FDA-Public Use
  Company Number: US-PURDUE-USA_2009_0036595

PATIENT
  Age: 77 Year
  Sex: Female

DRUGS (3)
  1. OXYCONTIN [Suspect]
     Indication: PAIN
     Dosage: 20 MG, Q12H
     Route: 048
  2. OXYCONTIN [Suspect]
     Dosage: 10 MG, Q12H
     Route: 048
  3. VICODIN [Suspect]
     Indication: DRUG USE FOR UNKNOWN INDICATION
     Dosage: UNK MG, UNK
     Route: 048

REACTIONS (2)
  - DELIRIUM [None]
  - THERAPEUTIC AGENT TOXICITY [None]
